FAERS Safety Report 20855375 (Version 7)
Quarter: 2024Q1

REPORT INFORMATION
  Report Type: Spontaneous
  Country: US (occurrence: US)
  Receive Date: 20220520
  Receipt Date: 20240109
  Transmission Date: 20240409
  Serious: Yes (Other)
  Sender: FDA-Public Use
  Company Number: US-PFIZER INC-202200716142

PATIENT
  Age: 63 Year
  Sex: Female

DRUGS (2)
  1. IBRANCE [Suspect]
     Active Substance: PALBOCICLIB
     Indication: Breast cancer female
     Dosage: 100 MG, CYCLIC (THREE WEEKS, 21 DAYS, AND THEN OFF FOR ONE WEEK)
     Route: 048
  2. IBRANCE [Suspect]
     Active Substance: PALBOCICLIB
     Dosage: 75 MG, CYCLIC (1 TABLET QD FOR 21 DAYS OUT OF A 28 DAY CYCLE)
     Route: 048

REACTIONS (11)
  - Aberrant aortic arch [Unknown]
  - Feeling abnormal [Unknown]
  - Stress [Unknown]
  - Red blood cell count decreased [Unknown]
  - Mean platelet volume decreased [Unknown]
  - Lymphocyte percentage decreased [Unknown]
  - Monocyte percentage decreased [Unknown]
  - Basophil percentage increased [Unknown]
  - Lymphocyte count decreased [Unknown]
  - Monocyte count decreased [Unknown]
  - Neoplasm progression [Unknown]
